FAERS Safety Report 5242490-0 (Version None)
Quarter: 2007Q1

REPORT INFORMATION
  Report Type: 
  Country: None (occurrence: None)
  Receive Date: 20070214
  Receipt Date: 20070126
  Transmission Date: 20070707
  Serious: Yes (Life-Threatening, Hospitalization, Other)
  Sender: FDA-Public Use
  Company Number: DSA_29296_2007

PATIENT
  Age: 73 Year
  Sex: Female

DRUGS (8)
  1. DILTIAZEM [Suspect]
     Indication: HYPERTENSION
     Dosage: 120 MG Q DAY
  2. ATENOLOL [Suspect]
     Indication: HYPERTENSION
     Dosage: 24 MG Q DAY
  3. ATENOLOL [Suspect]
     Indication: HYPERTENSION
     Dosage: 50 MG Q DAY
  4. CANDESARTAN [Concomitant]
  5. FUROSEMIDE [Concomitant]
  6. METOLAZONE [Concomitant]
  7. ISOSORBIDE MONONITRATE [Concomitant]
  8. OTHER UNSPECIFIED MEDICATION [Concomitant]

REACTIONS (20)
  - ASTHENIA [None]
  - BLOOD CREATINE PHOSPHOKINASE INCREASED [None]
  - BLOOD CREATINE PHOSPHOKINASE MB INCREASED [None]
  - BLOOD CREATININE INCREASED [None]
  - BLOOD POTASSIUM INCREASED [None]
  - BLOOD UREA INCREASED [None]
  - CARDIAC MURMUR [None]
  - DIZZINESS [None]
  - DYSPNOEA [None]
  - HAEMATOCRIT DECREASED [None]
  - HAEMOGLOBIN DECREASED [None]
  - HYPOTENSION [None]
  - LETHARGY [None]
  - NAUSEA [None]
  - NODAL RHYTHM [None]
  - PALLOR [None]
  - SINUS ARREST [None]
  - SINUS BRADYCARDIA [None]
  - TROPONIN I INCREASED [None]
  - VOMITING [None]
